FAERS Safety Report 5868957-X (Version None)
Quarter: 2008Q3

REPORT INFORMATION
  Report Type: 
  Country: None (occurrence: None)
  Receive Date: 20080902
  Receipt Date: 20080902
  Transmission Date: 20090109
  Serious: Yes (Other)
  Sender: FDA-Public Use
  Company Number: None

PATIENT
  Sex: Male
  Weight: 63.5036 kg

DRUGS (1)
  1. MEFLOQUINE [Suspect]
     Indication: MALARIA PROPHYLAXIS
     Dosage: PO
     Route: 048
     Dates: start: 19990616, end: 19990619

REACTIONS (14)
  - AFFECT LABILITY [None]
  - COLD SWEAT [None]
  - CRYING [None]
  - DEPRESSION [None]
  - DISTURBANCE IN ATTENTION [None]
  - DIVORCED [None]
  - EARLY RETIREMENT [None]
  - EMOTIONAL DISORDER [None]
  - FEELING OF DESPAIR [None]
  - IMPAIRED WORK ABILITY [None]
  - INSOMNIA [None]
  - MARITAL PROBLEM [None]
  - MUSCLE DISORDER [None]
  - SUICIDAL IDEATION [None]
